FAERS Safety Report 4281993-2 (Version None)
Quarter: 2004Q1

REPORT INFORMATION
  Report Type: 
  Country: None (occurrence: None)
  Receive Date: 20040128
  Receipt Date: 20040114
  Transmission Date: 20041129
  Serious: Yes (Hospitalization)
  Sender: FDA-Public Use
  Company Number: RENA-10722

PATIENT
  Age: 39 Year
  Sex: Male

DRUGS (10)
  1. RENAGEL [Suspect]
     Indication: HYPERPHOSPHATAEMIA
     Dosage: 0.8 G BID PO
     Route: 048
     Dates: start: 20030601
  2. BUMEX [Concomitant]
  3. REMERON [Concomitant]
  4. OXYCONTIN [Concomitant]
  5. VALIUM [Concomitant]
  6. NORVASC [Concomitant]
  7. CARDURA [Concomitant]
  8. PROCRIT [Concomitant]
  9. HYZAAR [Concomitant]
  10. LOTREL [Concomitant]

REACTIONS (1)
  - BLOOD POTASSIUM INCREASED [None]
